FAERS Safety Report 9417440 (Version 2)
Quarter: 2013Q4

REPORT INFORMATION
  Report Type: Spontaneous
  Country: US (occurrence: US)
  Receive Date: 20130724
  Receipt Date: 20131022
  Transmission Date: 20140711
  Serious: No
  Sender: FDA-Public Use
  Company Number: US-BRISTOL-MYERS SQUIBB COMPANY-18793398

PATIENT
  Age: 85 Year
  Sex: Female

DRUGS (5)
  1. ELIQUIS [Suspect]
  2. METOPROLOL [Concomitant]
  3. SYNTHROID [Concomitant]
  4. LASIX [Concomitant]
  5. LABETALOL [Concomitant]

REACTIONS (2)
  - Swelling face [Recovered/Resolved]
  - Drug prescribing error [Unknown]
